FAERS Safety Report 9096088 (Version 1)
Quarter: 2013Q1

REPORT INFORMATION
  Report Type: Report from Study
  Country: US (occurrence: US)
  Receive Date: 20130207
  Receipt Date: 20130207
  Transmission Date: 20140127
  Serious: Yes (Death)
  Sender: FDA-Public Use
  Company Number: US-SANOFI-AVENTIS-2013SA010204

PATIENT
  Age: 77 Year
  Sex: Male
  Weight: 49 kg

DRUGS (2)
  1. DOCETAXEL [Suspect]
     Indication: PROSTATE CANCER
     Dosage: TOTAL CYCLES-2
     Route: 065
  2. INVESTIGATIONAL DRUG [Suspect]
     Indication: PROSTATE CANCER
     Route: 065
     Dates: start: 20091111, end: 20100125

REACTIONS (1)
  - Multi-organ failure [Fatal]
